FAERS Safety Report 6193680-4 (Version None)
Quarter: 2009Q2

REPORT INFORMATION
  Report Type: 
  Country: None (occurrence: None)
  Receive Date: 20090518
  Receipt Date: 20090511
  Transmission Date: 20091009
  Serious: Yes (Life-Threatening, Hospitalization)
  Sender: FDA-Public Use
  Company Number: GB-PFIZER INC-2008038926

PATIENT
  Age: 55 Year

DRUGS (8)
  1. CHAMPIX [Suspect]
     Indication: SMOKING CESSATION THERAPY
     Dosage: 0.5 MG, UNK
     Route: 048
     Dates: start: 20080401, end: 20080404
  2. ACETYLSALICYLIC ACID [Concomitant]
     Indication: CARDIOVASCULAR EVENT PROPHYLAXIS
     Dosage: 75 MG, UNK
  3. DIAZEPAM [Concomitant]
     Dosage: 2 MG, AS NEEDED
  4. AMITRIPTLINE HYDROCHLORIDE TAB [Concomitant]
     Dosage: 50 MG, UNK
  5. PREMARIN [Concomitant]
     Indication: HORMONE REPLACEMENT THERAPY
     Dosage: 1.25 MG, UNK
  6. DICLOFENAC [Concomitant]
     Indication: ARTHRITIS
     Dosage: 75 MG, UNK
  7. FUROSEMIDE [Concomitant]
     Indication: HYPERTENSION
     Dosage: 40 MG, UNK
  8. EZETIMIBE [Concomitant]
     Indication: HYPERCHOLESTEROLAEMIA
     Dosage: 10 MG, UNK

REACTIONS (6)
  - ANAPHYLACTIC REACTION [None]
  - ANGIOEDEMA [None]
  - DYSPNOEA [None]
  - OEDEMA MOUTH [None]
  - SPEECH DISORDER [None]
  - SWOLLEN TONGUE [None]
